FAERS Safety Report 8791389 (Version 1)
Quarter: 2012Q4

REPORT INFORMATION
  Report Type: Spontaneous
  Country: US (occurrence: None)
  Receive Date: 20120914
  Receipt Date: 20120914
  Transmission Date: 20130627
  Serious: No
  Sender: FDA-Public Use
  Company Number: None

PATIENT
  Age: 79 Year
  Sex: Male
  Weight: 64.41 kg

DRUGS (2)
  1. LOVASTATIN [Suspect]
     Indication: CHOLESTEROL HIGH
     Dates: start: 200609, end: 201111
  2. FINASTERIDE [Concomitant]

REACTIONS (2)
  - Ultrasound liver abnormal [None]
  - Hepatic steatosis [None]
